FAERS Safety Report 6568948-X (Version None)
Quarter: 2010Q1

REPORT INFORMATION
  Report Type: 
  Country: None (occurrence: None)
  Receive Date: 20100203
  Receipt Date: 20100127
  Transmission Date: 20100710
  Serious: Yes (Hospitalization)
  Sender: FDA-Public Use
  Company Number: NL-TEVA-222598ISR

PATIENT
  Sex: Female
  Weight: 57 kg

DRUGS (8)
  1. CISPLATIN [Suspect]
     Indication: LUNG NEOPLASM MALIGNANT
     Route: 042
     Dates: start: 20091029, end: 20091211
  2. GEMCITABINE [Suspect]
     Indication: LUNG NEOPLASM MALIGNANT
     Route: 042
     Dates: start: 20091029, end: 20091217
  3. BUDESONIDE W/FORMOTEROL FUMARATE [Concomitant]
     Dosage: 400/12MCG/DO
     Route: 055
  4. METOCLOPRAMIDE [Concomitant]
  5. INSULIN DETEMIR [Concomitant]
     Dosage: 100E/ML PATROON 3ML
  6. IBUPROFEN [Concomitant]
  7. INSULIN GLULISINE [Concomitant]
     Dosage: 100E/ML FLACON 10ML
  8. GRANISETRON [Concomitant]

REACTIONS (1)
  - NECROSIS ISCHAEMIC [None]
